FAERS Safety Report 5961900-4 (Version None)
Quarter: 2008Q4

REPORT INFORMATION
  Report Type: 
  Country: None (occurrence: None)
  Receive Date: 20081121
  Receipt Date: 20081113
  Transmission Date: 20090506
  Serious: Yes (Death)
  Sender: FDA-Public Use
  Company Number: US-KINGPHARMUSA00001-K200801221

PATIENT
  Age: 52 Year
  Sex: Female

DRUGS (7)
  1. ALTACE [Suspect]
     Dosage: 5 MG, QD
     Route: 048
     Dates: end: 20080804
  2. IDARUBICIN HCL [Suspect]
     Dosage: 12 MG/M2, UNK
  3. CYTARABINE [Suspect]
     Dosage: 1000 MG/M2
  4. CYTARABINE [Suspect]
     Dosage: 1000 MG/M2, UNK
  5. MITOXANTRONE [Suspect]
     Dosage: 10 MG/M2, UNK
  6. VFEND [Concomitant]
     Dosage: 200 MG, UNK
     Dates: end: 20080801
  7. NEXIUM [Concomitant]
     Dosage: 40 MG, UNK
     Route: 048
     Dates: end: 20080813

REACTIONS (3)
  - BRONCHOPULMONARY ASPERGILLOSIS [None]
  - CIRCULATORY COLLAPSE [None]
  - SEPTIC SHOCK [None]
